FAERS Safety Report 12209849 (Version 2)
Quarter: 2016Q1

REPORT INFORMATION
  Report Type: Spontaneous
  Country: US (occurrence: US)
  Receive Date: 20160325
  Receipt Date: 20160331
  Transmission Date: 20160526
  Serious: No
  Sender: FDA-Public Use
  Company Number: US-ROCHE-1731701

PATIENT
  Age: 79 Year
  Sex: Female
  Weight: 104.3 kg

DRUGS (2)
  1. ACTIVASE [Suspect]
     Active Substance: ALTEPLASE
     Indication: ISCHAEMIC STROKE
     Dosage: ONCE
     Route: 040
     Dates: start: 20160323
  2. ACTIVASE [Suspect]
     Active Substance: ALTEPLASE
     Dosage: ONCE
     Route: 042
     Dates: start: 20160323, end: 20160323

REACTIONS (1)
  - International normalised ratio increased [Recovered/Resolved]

NARRATIVE: CASE EVENT DATE: 20160323
